FAERS Safety Report 18101022 (Version 3)
Quarter: 2020Q3

REPORT INFORMATION
  Report Type: Spontaneous
  Country: NL (occurrence: NL)
  Receive Date: 20200731
  Receipt Date: 20200825
  Transmission Date: 20201103
  Serious: Yes (Life-Threatening, Hospitalization, Other)
  Sender: FDA-Public Use
  Company Number: NL-AUROBINDO-AUR-APL-2020-026592

PATIENT
  Age: 35 Year
  Sex: Male
  Weight: 89 kg

DRUGS (37)
  1. EVEROLIMUS. [Interacting]
     Active Substance: EVEROLIMUS
     Dosage: 3 MILLIGRAM, TWO TIMES A DAY
     Route: 065
     Dates: start: 2016, end: 2020
  2. TRAMADOL. [Concomitant]
     Active Substance: TRAMADOL
     Indication: PYREXIA
  3. PARACETAMOL [Suspect]
     Active Substance: ACETAMINOPHEN
     Indication: HEADACHE
     Dosage: UNK
     Route: 065
     Dates: start: 2020
  4. CHLOROQUINE. [Interacting]
     Active Substance: CHLOROQUINE
     Dosage: 300 MILLIGRAM, TWO TIMES A DAY
     Route: 048
     Dates: start: 20200311
  5. EVEROLIMUS. [Interacting]
     Active Substance: EVEROLIMUS
     Dosage: 4 MILLIGRAM, ONCE A DAY
     Route: 065
     Dates: start: 202003, end: 202003
  6. EVEROLIMUS. [Interacting]
     Active Substance: EVEROLIMUS
     Dosage: 2 DOSAGE FORM,DOSE REDUCED DUE TO EXPECTED INTERACTION WITH LOPINAVIR/RITONAVIR
     Route: 065
     Dates: start: 202003, end: 202003
  7. CEFUROXIME. [Suspect]
     Active Substance: CEFUROXIME
     Indication: COVID-19
     Dosage: UNK
     Route: 042
     Dates: start: 202003, end: 202003
  8. TRAMADOL. [Concomitant]
     Active Substance: TRAMADOL
     Indication: COUGH
  9. TRAMADOL. [Concomitant]
     Active Substance: TRAMADOL
     Indication: MALAISE
  10. PARACETAMOL [Suspect]
     Active Substance: ACETAMINOPHEN
     Indication: MALAISE
  11. ALEMTUZUMAB [Suspect]
     Active Substance: ALEMTUZUMAB
     Indication: IMMUNOSUPPRESSANT DRUG THERAPY
     Dosage: 15 MILLIGRAM, ONCE A DAY
     Route: 065
  12. PARACETAMOL [Suspect]
     Active Substance: ACETAMINOPHEN
     Indication: COUGH
  13. PARACETAMOL [Suspect]
     Active Substance: ACETAMINOPHEN
     Indication: MYALGIA
  14. EVEROLIMUS. [Interacting]
     Active Substance: EVEROLIMUS
     Dosage: 3 MILLIGRAM, TWO TIMES A DAY
     Route: 065
     Dates: start: 2016, end: 202003
  15. EVEROLIMUS. [Interacting]
     Active Substance: EVEROLIMUS
     Dosage: 2 MILLIGRAM, ONCE A DAY
     Route: 065
     Dates: start: 202003, end: 202003
  16. KALETRA [Suspect]
     Active Substance: LOPINAVIR\RITONAVIR
     Indication: COVID-19 PNEUMONIA
     Dosage: 2 DOSAGE FORM, ONCE A DAY
     Route: 048
     Dates: start: 202003, end: 202003
  17. CEFUROXIME. [Suspect]
     Active Substance: CEFUROXIME
     Indication: ANTIBIOTIC THERAPY
  18. CHLOROQUINE. [Interacting]
     Active Substance: CHLOROQUINE
     Indication: COVID-19
     Dosage: 600 MILLIGRAM, ONCE A DAY
     Route: 048
     Dates: start: 202003, end: 202003
  19. EVEROLIMUS. [Interacting]
     Active Substance: EVEROLIMUS
     Indication: IMMUNOSUPPRESSANT DRUG THERAPY
     Dosage: 2 MILLIGRAM
     Route: 065
  20. EVEROLIMUS. [Interacting]
     Active Substance: EVEROLIMUS
     Indication: RENAL TRANSPLANT
     Dosage: 2 MILLIGRAM, TWO TIMES A DAY
     Route: 065
  21. LOPINAVIR + RITONAVIR [Suspect]
     Active Substance: LOPINAVIR\RITONAVIR
     Indication: ANTIVIRAL TREATMENT
     Dosage: 1 DOSAGE FORM, TWO TIMES A DAY
     Route: 065
     Dates: start: 202003, end: 202003
  22. KALETRA [Suspect]
     Active Substance: LOPINAVIR\RITONAVIR
     Indication: COVID-19
     Dosage: UNIT DOSE: 400/100 MG
     Route: 048
     Dates: start: 202003, end: 202003
  23. PREDNISOLONE. [Suspect]
     Active Substance: PREDNISOLONE
     Indication: IMMUNOSUPPRESSANT DRUG THERAPY
     Dosage: 7.5 MILLIGRAM, ONCE A DAY
     Route: 065
  24. CHLOROQUINE. [Interacting]
     Active Substance: CHLOROQUINE
     Indication: COVID-19 PNEUMONIA
     Dosage: 100 MILLIGRAM
     Route: 048
  25. EVEROLIMUS. [Interacting]
     Active Substance: EVEROLIMUS
     Dosage: 2 MILLIGRAM, TWO TIMES A DAY
     Route: 065
     Dates: start: 2020
  26. EVEROLIMUS. [Interacting]
     Active Substance: EVEROLIMUS
     Dosage: 2 MILLIGRAM, TWO TIMES A DAY
     Route: 065
     Dates: start: 20200527
  27. KALETRA [Suspect]
     Active Substance: LOPINAVIR\RITONAVIR
     Dosage: 4 DOSAGE FORM, ONCE A DAY (2X PER DAG 2 STUKS)
     Route: 048
     Dates: start: 20200310, end: 20200314
  28. PARACETAMOL [Suspect]
     Active Substance: ACETAMINOPHEN
     Indication: PYREXIA
     Dosage: UNK
     Route: 065
     Dates: start: 202002
  29. PREDNISOLONE. [Suspect]
     Active Substance: PREDNISOLONE
     Dosage: 7.5 MILLIGRAM, ONCE A DAY
     Route: 065
     Dates: start: 2016
  30. CHLOROQUINE. [Interacting]
     Active Substance: CHLOROQUINE
     Dosage: 600 MILLIGRAM (600 MG LOADING DOSE)
     Route: 048
     Dates: start: 20200310, end: 202003
  31. EVEROLIMUS. [Interacting]
     Active Substance: EVEROLIMUS
     Dosage: 3 DOSAGE FORM, TWO TIMES A DAY,TARGETED TROUGH CONCENTRATIONS BETWEEN 3?8 MICROG/L.
     Route: 065
     Dates: start: 202003, end: 202003
  32. LOPINAVIR + RITONAVIR [Suspect]
     Active Substance: LOPINAVIR\RITONAVIR
     Indication: IMMUNOSUPPRESSANT DRUG THERAPY
     Dosage: UNK, 400/100 MILLIGRAM, TWICE DAILY
     Route: 065
     Dates: start: 202003, end: 202003
  33. CEFTRIAXONE. [Concomitant]
     Active Substance: CEFTRIAXONE
     Indication: ANTIBIOTIC THERAPY
     Dosage: UNK
     Route: 042
     Dates: start: 202003
  34. CEFTRIAXONE. [Concomitant]
     Active Substance: CEFTRIAXONE
     Indication: COVID-19
  35. LOPINAVIR + RITONAVIR [Suspect]
     Active Substance: LOPINAVIR\RITONAVIR
     Indication: COVID-19
  36. TRAMADOL. [Concomitant]
     Active Substance: TRAMADOL
     Indication: MYALGIA
     Dosage: UNK
     Route: 065
     Dates: start: 202002
  37. TRAMADOL. [Concomitant]
     Active Substance: TRAMADOL
     Indication: HEADACHE
     Dosage: UNK
     Route: 065
     Dates: start: 2020

REACTIONS (39)
  - Hypoxia [Recovered/Resolved]
  - Headache [Recovering/Resolving]
  - COVID-19 pneumonia [Recovering/Resolving]
  - Rhabdomyolysis [Recovered/Resolved]
  - Drug interaction [Recovering/Resolving]
  - Toxicity to various agents [Recovered/Resolved]
  - Pulmonary toxicity [Recovered/Resolved]
  - Respiratory failure [Recovered/Resolved]
  - Productive cough [Recovering/Resolving]
  - Tubulointerstitial nephritis [Not Recovered/Not Resolved]
  - Diarrhoea [Recovering/Resolving]
  - Intentional product misuse [Unknown]
  - Interstitial lung disease [Recovered/Resolved]
  - Transaminases increased [Recovered/Resolved]
  - Rhinorrhoea [Recovering/Resolving]
  - Rales [Recovering/Resolving]
  - Nasal congestion [Recovering/Resolving]
  - Respiratory alkalosis [Recovered/Resolved]
  - Lung consolidation [Recovering/Resolving]
  - Metabolic acidosis [Recovering/Resolving]
  - Tachypnoea [Recovering/Resolving]
  - Myalgia [Recovering/Resolving]
  - Acute kidney injury [Recovering/Resolving]
  - Lymphopenia [Recovering/Resolving]
  - Cough [Recovering/Resolving]
  - Renal impairment [Recovering/Resolving]
  - Acute pulmonary oedema [Recovered/Resolved]
  - Malaise [Recovering/Resolving]
  - Pyrexia [Recovering/Resolving]
  - Drug abuse [Unknown]
  - COVID-19 [Recovered/Resolved]
  - Off label use [Recovering/Resolving]
  - Vomiting [Recovering/Resolving]
  - Nausea [Recovering/Resolving]
  - Pneumococcal infection [Unknown]
  - Condition aggravated [Recovered/Resolved]
  - Renal failure [Recovering/Resolving]
  - Dyspnoea [Recovering/Resolving]
  - Acute respiratory distress syndrome [Recovering/Resolving]

NARRATIVE: CASE EVENT DATE: 202002
